FAERS Safety Report 11429696 (Version 1)
Quarter: 2015Q3

REPORT INFORMATION
  Report Type: Spontaneous
  Country: US (occurrence: US)
  Receive Date: 20150828
  Receipt Date: 20150828
  Transmission Date: 20151125
  Serious: No
  Sender: FDA-Public Use
  Company Number: US-ROCHE-1154443

PATIENT
  Age: 63 Year
  Sex: Male

DRUGS (4)
  1. RIBAVIRIN. [Suspect]
     Active Substance: RIBAVIRIN
     Route: 065
  2. RIBAVIRIN. [Suspect]
     Active Substance: RIBAVIRIN
     Indication: HEPATITIS C
     Dosage: 1200 MG/DAY DIVIDED DOSES (1000 MG)
     Route: 065
     Dates: start: 20121028
  3. PEGASYS [Suspect]
     Active Substance: PEGINTERFERON ALFA-2A
     Indication: HEPATITIS C
     Route: 065
     Dates: start: 20121028
  4. TELAPREVIR [Suspect]
     Active Substance: TELAPREVIR
     Indication: HEPATITIS C
     Route: 065
     Dates: start: 20121028

REACTIONS (9)
  - Fatigue [Unknown]
  - Dyspepsia [Unknown]
  - Proctalgia [Recovering/Resolving]
  - Headache [Unknown]
  - Dizziness [Unknown]
  - Asthenia [Unknown]
  - Pruritus [Unknown]
  - Blood test abnormal [Unknown]
  - Diarrhoea [Recovering/Resolving]

NARRATIVE: CASE EVENT DATE: 20121029
